FAERS Safety Report 13475858 (Version 2)
Quarter: 2017Q2

REPORT INFORMATION
  Report Type: Spontaneous
  Country: IT (occurrence: IT)
  Receive Date: 20170425
  Receipt Date: 20170508
  Transmission Date: 20170830
  Serious: Yes (Other)
  Sender: FDA-Public Use
  Company Number: IT-ROCHE-1924699

PATIENT
  Age: 86 Year
  Sex: Female

DRUGS (8)
  1. OLANZAPINE. [Concomitant]
     Active Substance: OLANZAPINE
  2. BISOPROLOL HEMIFUMARATE [Concomitant]
     Active Substance: BISOPROLOL FUMARATE
  3. CLEXANE T [Concomitant]
     Active Substance: ENOXAPARIN SODIUM
     Dosage: 6000 I.U. AXA / 0.6 ML 10 X 0.6 ML PRE-FILLED
     Route: 065
  4. RIVOTRIL [Suspect]
     Active Substance: CLONAZEPAM
     Indication: FEELING JITTERY
     Dosage: 2.5 MG/ML ORAL DROPS, SOLUTION 10 ML BOTTLE
     Route: 048
     Dates: start: 20170320, end: 20170322
  5. LASIX [Concomitant]
     Active Substance: FUROSEMIDE
     Dosage: ^25 MG TABLETS^ 30 TABLETS (
     Route: 065
  6. TRITTICO [Concomitant]
     Active Substance: TRAZODONE HYDROCHLORIDE
     Dosage: 75 MG 30 SCORED TABLETS
     Route: 065
  7. ZUGLIMET [Concomitant]
     Active Substance: METFORMIN HYDROCHLORIDE
     Dosage: 500 MG FILM COATED TABLETS, 30 TABLETS
     Route: 065
  8. CLEXANE [Concomitant]
     Active Substance: ENOXAPARIN SODIUM
     Dosage: 4000 I.U. AXA / 0.4 ML 6 X 0.4 ML PRE-FILLED
     Route: 065

REACTIONS (1)
  - Coma [Recovered/Resolved]

NARRATIVE: CASE EVENT DATE: 20170320
